FAERS Safety Report 15992022 (Version 3)
Quarter: 2019Q1

REPORT INFORMATION
  Report Type: Spontaneous
  Country: GB (occurrence: GB)
  Receive Date: 20190221
  Receipt Date: 20190322
  Transmission Date: 20190418
  Serious: Yes (Other)
  Sender: FDA-Public Use
  Company Number: GB-NOVOPROD-646966

PATIENT
  Age: 62 Year
  Sex: Male

DRUGS (2)
  1. NOVORAPID [Suspect]
     Active Substance: INSULIN ASPART
     Indication: TYPE 1 DIABETES MELLITUS
     Dosage: 8 UNITS AT MORNING
     Route: 065
     Dates: start: 201610
  2. LANTUS [Suspect]
     Active Substance: INSULIN GLARGINE
     Indication: PRODUCT USED FOR UNKNOWN INDICATION
     Dosage: UNK
     Route: 065
     Dates: start: 201610

REACTIONS (4)
  - Diabetes mellitus inadequate control [Unknown]
  - Product storage error [Unknown]
  - Blood glucose increased [Not Recovered/Not Resolved]
  - Inguinal hernia [Unknown]

NARRATIVE: CASE EVENT DATE: 20190211
